FAERS Safety Report 8963676 (Version 1)
Quarter: 2012Q4

REPORT INFORMATION
  Report Type: 
  Country: PL (occurrence: PL)
  Receive Date: 20121214
  Receipt Date: 20121214
  Transmission Date: 20130627
  Serious: Yes (Hospitalization)
  Sender: FDA-Public Use
  Company Number: PL-SANOFI-AVENTIS-2012SA089944

PATIENT
  Age: 51 Year
  Sex: Male
  Weight: 78 kg

DRUGS (6)
  1. CLOPIDOGREL BISULFATE [Suspect]
     Indication: DRUG USE FOR UNKNOWN INDICATION
     Route: 065
     Dates: start: 20081120
  2. ASPIRIN [Suspect]
     Indication: DRUG USE FOR UNKNOWN INDICATION
     Route: 065
     Dates: start: 20081120
  3. METOPROLOL [Concomitant]
     Dates: start: 20081112
  4. RAMIPRIL [Concomitant]
     Dates: start: 20081112
  5. ATORVASTATIN [Concomitant]
     Dates: start: 20090129
  6. ENOXAPARIN [Concomitant]
     Dates: start: 20090129, end: 20090129

REACTIONS (2)
  - Non-cardiac chest pain [Unknown]
  - Abdominal pain upper [Unknown]
